FAERS Safety Report 20447845 (Version 1)
Quarter: 2022Q1

REPORT INFORMATION
  Report Type: Spontaneous
  Country: CA (occurrence: CA)
  Receive Date: 20220209
  Receipt Date: 20220209
  Transmission Date: 20220423
  Serious: Yes (Hospitalization)
  Sender: FDA-Public Use
  Company Number: CA-TEVA-2022-CA-2004404

PATIENT
  Age: 51 Year
  Sex: Male

DRUGS (3)
  1. BUPROPION [Interacting]
     Active Substance: BUPROPION
     Route: 048
  2. CLOMIPRAMINE HYDROCHLORIDE [Interacting]
     Active Substance: CLOMIPRAMINE HYDROCHLORIDE
     Route: 065
  3. VALPROIC ACID [Interacting]
     Active Substance: VALPROIC ACID
     Route: 065

REACTIONS (3)
  - Drug interaction [Unknown]
  - Potentiating drug interaction [Unknown]
  - Serotonin syndrome [Unknown]
